FAERS Safety Report 22989147 (Version 2)
Quarter: 2023Q4

REPORT INFORMATION
  Report Type: Spontaneous
  Country: US (occurrence: US)
  Receive Date: 20230927
  Receipt Date: 20231002
  Transmission Date: 20240109
  Serious: No
  Sender: FDA-Public Use
  Company Number: US-ELI_LILLY_AND_COMPANY-US202309014145

PATIENT
  Age: 54 Year
  Sex: Male

DRUGS (1)
  1. MOUNJARO [Suspect]
     Active Substance: TIRZEPATIDE
     Indication: Type 2 diabetes mellitus
     Dosage: 10 MG, UNKNOWN
     Route: 058
     Dates: start: 202305

REACTIONS (1)
  - Injection site erythema [Unknown]

NARRATIVE: CASE EVENT DATE: 20230919
